FAERS Safety Report 23963860 (Version 2)
Quarter: 2024Q2

REPORT INFORMATION
  Report Type: Spontaneous
  Country: US (occurrence: US)
  Receive Date: 20240611
  Receipt Date: 20240619
  Transmission Date: 20240716
  Serious: No
  Sender: FDA-Public Use
  Company Number: US-BAYER-2024A080923

PATIENT

DRUGS (1)
  1. CLARITIN [Suspect]
     Active Substance: LORATADINE
     Dosage: 1 DF, QD (ONCE A DAY)

REACTIONS (7)
  - Gingival pain [Unknown]
  - Gingival swelling [Unknown]
  - Lip swelling [Unknown]
  - Lymphadenitis [Unknown]
  - Lymph node pain [None]
  - Product quality issue [None]
  - Lymphadenopathy [Unknown]
